FAERS Safety Report 4609171-5 (Version None)
Quarter: 2005Q1

REPORT INFORMATION
  Report Type: 
  Country: None (occurrence: None)
  Receive Date: 20050315
  Receipt Date: 20030130
  Transmission Date: 20050727
  Serious: Yes (Death)
  Sender: FDA-Public Use
  Company Number: US-MERCK-0302USA00074

PATIENT
  Age: 83 Year
  Sex: Female

DRUGS (9)
  1. VIOXX [Suspect]
     Indication: ARTHRALGIA
     Route: 048
     Dates: start: 20001101, end: 20010701
  2. VIOXX [Suspect]
     Route: 048
     Dates: start: 20000201
  3. VIOXX [Suspect]
     Indication: ARTHRITIS
     Route: 048
     Dates: start: 20001101, end: 20010701
  4. VIOXX [Suspect]
     Route: 048
     Dates: start: 20000201
  5. AZOPT DROPS [Concomitant]
     Route: 065
  6. LEVOXYL [Concomitant]
     Route: 065
  7. OCUPRESS [Concomitant]
     Route: 065
  8. PREMPRO [Concomitant]
     Route: 065
     Dates: end: 20010301
  9. MAXZIDE [Concomitant]
     Route: 065
     Dates: end: 20010801

REACTIONS (55)
  - ADVERSE EVENT [None]
  - ALOPECIA [None]
  - ANOREXIA [None]
  - ANURIA [None]
  - APHASIA [None]
  - ARTHRALGIA [None]
  - ASTHENIA [None]
  - BLOOD CREATININE INCREASED [None]
  - BLOOD PRESSURE DIASTOLIC DECREASED [None]
  - BLOOD UREA INCREASED [None]
  - BUNDLE BRANCH BLOCK LEFT [None]
  - BUTTOCK PAIN [None]
  - CARDIAC MURMUR [None]
  - CHROMATURIA [None]
  - CHRONIC OBSTRUCTIVE PULMONARY DISEASE [None]
  - CONFUSIONAL STATE [None]
  - CONTUSION [None]
  - DEATH [None]
  - DECREASED APPETITE [None]
  - DIZZINESS [None]
  - DIZZINESS POSTURAL [None]
  - DRY MOUTH [None]
  - DYSPHAGIA [None]
  - DYSPNOEA [None]
  - EXTRASYSTOLES [None]
  - EYE PAIN [None]
  - FAILURE TO THRIVE [None]
  - FALL [None]
  - FATIGUE [None]
  - FEELING HOT [None]
  - GAIT DISTURBANCE [None]
  - HEAD INJURY [None]
  - INTERSTITIAL LUNG DISEASE [None]
  - LIMB INJURY [None]
  - LYMPHOCYTE PERCENTAGE DECREASED [None]
  - METABOLIC DISORDER [None]
  - MYALGIA [None]
  - NORMOCHROMIC NORMOCYTIC ANAEMIA [None]
  - OEDEMA PERIPHERAL [None]
  - ORAL INTAKE REDUCED [None]
  - PITTING OEDEMA [None]
  - PNEUMONIA [None]
  - PRODUCTIVE COUGH [None]
  - RALES [None]
  - RED BLOOD CELL COUNT DECREASED [None]
  - REFUSAL OF TREATMENT BY PATIENT [None]
  - RESPIRATORY RATE INCREASED [None]
  - SALIVARY GLAND NEOPLASM [None]
  - SALIVARY GLAND PAIN [None]
  - SKIN LACERATION [None]
  - SUPRAVENTRICULAR EXTRASYSTOLES [None]
  - TREATMENT NONCOMPLIANCE [None]
  - URINARY RETENTION [None]
  - URINARY TRACT INFECTION [None]
  - URINE ODOUR ABNORMAL [None]
